FAERS Safety Report 16540295 (Version 1)
Quarter: 2019Q3

REPORT INFORMATION
  Report Type: Spontaneous
  Country: US (occurrence: US)
  Receive Date: 20190524
  Receipt Date: 20190524
  Transmission Date: 20191004
  Serious: Yes (Life-Threatening)
  Sender: FDA-Public Use
  Company Number: None

PATIENT
  Age: 47 Year
  Sex: Male
  Weight: 94.35 kg

DRUGS (3)
  1. PHENOBARBITAL 50 MG CHEWABLE [Suspect]
     Active Substance: PHENOBARBITAL
     Route: 048
  2. PHENOBARBITAL 100 MG TAB [Suspect]
     Active Substance: PHENOBARBITAL
     Indication: CRANIOCEREBRAL INJURY
     Dosage: 5 CAP DAILY
     Route: 048
     Dates: start: 1999
  3. PHENOBARBITAL 100 MG TAB [Suspect]
     Active Substance: PHENOBARBITAL
     Indication: POST-TRAUMATIC EPILEPSY
     Dosage: 5 CAP DAILY
     Route: 048
     Dates: start: 1999

REACTIONS (1)
  - Generalised tonic-clonic seizure [None]

NARRATIVE: CASE EVENT DATE: 2005
